FAERS Safety Report 4523584-1 (Version None)
Quarter: 2004Q4

REPORT INFORMATION
  Report Type: 
  Country: None (occurrence: None)
  Receive Date: 20041117
  Receipt Date: 20040728
  Transmission Date: 20050328
  Serious: Yes (Hospitalization)
  Sender: FDA-Public Use
  Company Number: DE-JNJFOC-20040708196

PATIENT
  Age: 70 Year
  Sex: Female

DRUGS (8)
  1. LEVOFLOXACIN [Suspect]
     Indication: PNEUMONIA
     Dosage: INTRAVENOUS
     Route: 042
     Dates: start: 20030227, end: 20030227
  2. DOXAZOSIN MESYLATE [Concomitant]
  3. PREDNISONE [Concomitant]
  4. LISINOPRIL [Concomitant]
  5. HUMULIN N [Concomitant]
  6. CALCIUM WITH VITAMIN D (CALCIUM WITH VITAMIN D) [Concomitant]
  7. PREVACID [Concomitant]
  8. ACCUPRIL [Concomitant]

REACTIONS (3)
  - DIARRHOEA [None]
  - RECTAL HAEMORRHAGE [None]
  - URINARY TRACT INFECTION [None]
